FAERS Safety Report 20367210 (Version 6)
Quarter: 2024Q3

REPORT INFORMATION
  Report Type: Report from Study
  Country: US (occurrence: US)
  Receive Date: 20220123
  Receipt Date: 20240926
  Transmission Date: 20241017
  Serious: Yes (Other)
  Sender: GLAXOSMITHKLINE
  Company Number: US-GLAXOSMITHKLINE-US2022AMR011092

PATIENT
  Age: 73 Year
  Sex: Female

DRUGS (2)
  1. NIRAPARIB [Suspect]
     Active Substance: NIRAPARIB
     Indication: Ovarian cancer
     Dosage: 300 MG
     Dates: start: 20220110
  2. NIRAPARIB [Suspect]
     Active Substance: NIRAPARIB
     Dosage: 200 MG, QD
     Dates: start: 202202

REACTIONS (13)
  - Malignant neoplasm progression [Unknown]
  - Positron emission tomogram abnormal [Unknown]
  - Constipation [Recovered/Resolved]
  - Blood pressure increased [Recovering/Resolving]
  - Headache [Not Recovered/Not Resolved]
  - Heart rate increased [Not Recovered/Not Resolved]
  - Myalgia [Unknown]
  - Arthralgia [Unknown]
  - Platelet count decreased [Not Recovered/Not Resolved]
  - Carbohydrate antigen 125 increased [Unknown]
  - Nausea [Unknown]
  - Neoplasm [Unknown]
  - Product dose omission in error [Unknown]

NARRATIVE: CASE EVENT DATE: 20220101
